FAERS Safety Report 9846559 (Version 3)
Quarter: 2014Q1

REPORT INFORMATION
  Report Type: Spontaneous
  Country: US (occurrence: US)
  Receive Date: 20140127
  Receipt Date: 20140319
  Transmission Date: 20141002
  Serious: Yes (Other)
  Sender: FDA-Public Use
  Company Number: US-GLAXOSMITHKLINE-A1057083A

PATIENT
  Age: 64 Year
  Sex: Female

DRUGS (7)
  1. ADVAIR [Suspect]
     Indication: INFLAMMATION
     Dosage: 1PUFF PER DAY
     Route: 055
     Dates: start: 2009
  2. PROZAC [Concomitant]
  3. PROVENTIL HFA [Concomitant]
  4. ACIDOPHILUS [Concomitant]
  5. VITAMIN E [Concomitant]
  6. CORAL CALCIUM [Concomitant]
  7. DAILY VITAMIN [Concomitant]

REACTIONS (10)
  - Lower respiratory tract infection [Recovering/Resolving]
  - Pulmonary congestion [Recovering/Resolving]
  - Oropharyngeal pain [Recovering/Resolving]
  - Nasopharyngitis [Recovering/Resolving]
  - Malaise [Recovering/Resolving]
  - Increased upper airway secretion [Recovering/Resolving]
  - Bronchitis [Recovering/Resolving]
  - Off label use [Unknown]
  - Drug administration error [Recovering/Resolving]
  - Product quality issue [Unknown]
